FAERS Safety Report 10562766 (Version 1)
Quarter: 2014Q4

REPORT INFORMATION
  Report Type: Spontaneous
  Country: US (occurrence: None)
  Receive Date: 20141103
  Receipt Date: 20141103
  Transmission Date: 20150529
  Serious: Yes (Hospitalization)
  Sender: FDA-Public Use
  Company Number: None

PATIENT
  Age: 51 Year
  Sex: Male
  Weight: 73.6 kg

DRUGS (5)
  1. SPRYCEL [Suspect]
     Active Substance: DASATINIB
     Indication: CHRONIC MYELOID LEUKAEMIA
     Route: 048
     Dates: start: 20130830, end: 20141030
  2. DIVALPROEX [Concomitant]
     Active Substance: DIVALPROEX SODIUM
  3. TRILEPTAL [Concomitant]
     Active Substance: OXCARBAZEPINE
  4. PREDNISONE. [Concomitant]
     Active Substance: PREDNISONE
  5. LEVOTHYROXINE [Concomitant]
     Active Substance: LEVOTHYROXINE

REACTIONS (26)
  - Right ventricular failure [None]
  - Polypectomy [None]
  - Rash [None]
  - Acute respiratory failure [None]
  - Acute kidney injury [None]
  - Pulmonary oedema [None]
  - Speech disorder [None]
  - Dysphonia [None]
  - Gastrointestinal submucosal tumour [None]
  - Blister [None]
  - Dyspnoea [None]
  - Cor pulmonale [None]
  - Thrombocytopenia [None]
  - Diverticulum [None]
  - Weight decreased [None]
  - Pleural effusion [None]
  - Fluid retention [None]
  - Scar [None]
  - Tooth disorder [None]
  - Oedema peripheral [None]
  - Hypotension [None]
  - Brain natriuretic peptide increased [None]
  - Dysphagia [None]
  - Pulmonary hypertension [None]
  - Renal haemorrhage [None]
  - Cardiac failure congestive [None]

NARRATIVE: CASE EVENT DATE: 20141021
